FAERS Safety Report 14354615 (Version 1)
Quarter: 2018Q1

REPORT INFORMATION
  Report Type: Spontaneous
  Country: US (occurrence: US)
  Receive Date: 20180104
  Receipt Date: 20180104
  Transmission Date: 20180509
  Serious: No
  Sender: FDA-Public Use
  Company Number: None

PATIENT
  Sex: Female

DRUGS (1)
  1. ENBREL [Suspect]
     Active Substance: ETANERCEPT
     Indication: RHEUMATOID ARTHRITIS
     Route: 058
     Dates: start: 201701

REACTIONS (6)
  - Eye swelling [None]
  - Rosacea [None]
  - Rash macular [None]
  - Eyelid disorder [None]
  - Bronchitis [None]
  - Pneumonia [None]
